FAERS Safety Report 6300054-1 (Version None)
Quarter: 2009Q3

REPORT INFORMATION
  Report Type: 
  Country: None (occurrence: None)
  Receive Date: 20090806
  Receipt Date: 20090728
  Transmission Date: 20100115
  Serious: Yes (Hospitalization)
  Sender: FDA-Public Use
  Company Number: NO-ELI_LILLY_AND_COMPANY-NO200907004764

PATIENT
  Age: 60 Year
  Sex: Female
  Weight: 51.7 kg

DRUGS (5)
  1. ZYPADHERA [Suspect]
     Indication: SCHIZOPHRENIA
     Dosage: 300 MG, EVERY 2 WEEKS
     Route: 030
     Dates: start: 20090508
  2. ZYPADHERA [Suspect]
     Dosage: 405 MG, MONTHLY (1/M)
     Route: 030
     Dates: start: 20090721
  3. ZYPREXA [Suspect]
     Dosage: 10 TO 20 MG
     Dates: start: 20000301
  4. ZYPREXA [Suspect]
     Dosage: 10 TO 20 MG
     Dates: start: 20090430, end: 20090511
  5. NITRAZEPAM [Concomitant]
     Dosage: 10 MG, EACH EVENING

REACTIONS (7)
  - AKATHISIA [None]
  - BLOOD PRESSURE DECREASED [None]
  - CONFUSIONAL STATE [None]
  - DIZZINESS [None]
  - DYSARTHRIA [None]
  - POST PROCEDURAL COMPLICATION [None]
  - SOMNOLENCE [None]
